FAERS Safety Report 5242005-7 (Version None)
Quarter: 2007Q1

REPORT INFORMATION
  Report Type: 
  Country: None (occurrence: None)
  Receive Date: 20070220
  Receipt Date: 20070209
  Transmission Date: 20070707
  Serious: Yes (Hospitalization)
  Sender: FDA-Public Use
  Company Number: GB-PFIZER INC-2007001981

PATIENT
  Sex: Female

DRUGS (4)
  1. LYRICA [Suspect]
     Indication: GENERALISED ANXIETY DISORDER
     Route: 048
  2. DIAZEPAM [Concomitant]
  3. CITALOPRAM HYDROBROMIDE [Concomitant]
     Route: 048
  4. OLANZAPINE [Concomitant]
     Route: 048

REACTIONS (1)
  - PNEUMONIA [None]
